FAERS Safety Report 14482027 (Version 1)
Quarter: 2018Q1

REPORT INFORMATION
  Report Type: Report from Study
  Country: DE (occurrence: DE)
  Receive Date: 20180202
  Receipt Date: 20180202
  Transmission Date: 20180509
  Serious: Yes (Hospitalization, Other)
  Sender: FDA-Public Use
  Company Number: DE-IPSEN BIOPHARMACEUTICALS, INC.-2018-00787

PATIENT
  Age: 64 Year
  Sex: Male
  Weight: 59 kg

DRUGS (8)
  1. 5-FU [Suspect]
     Active Substance: FLUOROURACIL
     Indication: COLORECTAL CANCER METASTATIC
     Route: 050
     Dates: start: 20141208, end: 20141208
  2. LEUCOVORIN. [Suspect]
     Active Substance: LEUCOVORIN
     Indication: COLORECTAL CANCER METASTATIC
     Route: 050
     Dates: start: 20141208
  3. 5-FU [Suspect]
     Active Substance: FLUOROURACIL
     Dosage: NOT REPORTED
     Route: 050
     Dates: start: 20150202, end: 20150202
  4. LEUCOVORIN. [Suspect]
     Active Substance: LEUCOVORIN
     Dosage: NOT REPORTED
     Route: 050
     Dates: start: 20150202, end: 20150202
  5. PEGYLATED LIPOSOMAL IRINOTECAN [Suspect]
     Active Substance: IRINOTECAN HYDROCHLORIDE
     Indication: OFF LABEL USE
     Dosage: NOT REPORTED
     Route: 050
     Dates: start: 20150205
  6. PEGYLATED LIPOSOMAL IRINOTECAN [Suspect]
     Active Substance: IRINOTECAN HYDROCHLORIDE
     Indication: COLORECTAL CANCER METASTATIC
     Route: 050
     Dates: start: 20141208, end: 20141208
  7. PANTOPRAZOLE [Concomitant]
     Active Substance: PANTOPRAZOLE
  8. AFLIBERCEPT [Suspect]
     Active Substance: AFLIBERCEPT
     Indication: COLORECTAL CANCER METASTATIC
     Dosage: NOT REPORTED
     Route: 050
     Dates: start: 20150202, end: 20150202

REACTIONS (3)
  - Dehydration [Recovered/Resolved]
  - Off label use [Unknown]
  - Acute hepatic failure [Not Recovered/Not Resolved]

NARRATIVE: CASE EVENT DATE: 20150209
